FAERS Safety Report 7481332-X (Version None)
Quarter: 2011Q2

REPORT INFORMATION
  Report Type: 
  Country: None (occurrence: None)
  Receive Date: 20110516
  Receipt Date: 20110505
  Transmission Date: 20111010
  Serious: Yes (Other)
  Sender: FDA-Public Use
  Company Number: DE-NOVOPROD-322776

PATIENT
  Sex: Male
  Weight: 91.3 kg

DRUGS (4)
  1. NORDITROPIN FLEXPRO [Suspect]
     Indication: GROWTH HORMONE DEFICIENCY
     Dosage: UNK
     Route: 058
     Dates: start: 20091117, end: 20110119
  2. LEVOTHYROXINE SODIUM [Concomitant]
     Dosage: UNK
     Route: 048
     Dates: start: 20070504
  3. HYDROCORTISON                      /00028601/ [Concomitant]
     Dosage: UNK
     Route: 048
     Dates: start: 20070504
  4. TESTOSTERONE [Concomitant]
     Dosage: UNK
     Dates: start: 20070501

REACTIONS (2)
  - PITUITARY TUMOUR BENIGN [None]
  - CONDITION AGGRAVATED [None]
